FAERS Safety Report 4290302-4 (Version None)
Quarter: 2004Q1

REPORT INFORMATION
  Report Type: 
  Country: None (occurrence: None)
  Receive Date: 20040209
  Receipt Date: 20040127
  Transmission Date: 20041129
  Serious: Yes (Hospitalization)
  Sender: FDA-Public Use
  Company Number: 2004005610

PATIENT
  Age: 75 Year
  Sex: Female

DRUGS (18)
  1. TIKOSYN [Suspect]
     Indication: ILL-DEFINED DISORDER
     Dosage: 500 MCG (BID), ORAL
     Route: 048
     Dates: start: 20010101
  2. METOPROLOL SUCCINATE [Concomitant]
  3. FUROSEMIDE [Concomitant]
  4. LISINOPRIL [Concomitant]
  5. AMLODIPINE BESYLATE [Concomitant]
  6. SIMVASTATIN [Concomitant]
  7. INSULIN GLARGINE (INSULIN GLARGINE) [Concomitant]
  8. ALLOPURINOL [Concomitant]
  9. GABAPENTIN [Concomitant]
  10. ALPRAZOLAM [Concomitant]
  11. WARFARIN SODIUM [Concomitant]
  12. NITROGLYCERIN [Concomitant]
  13. CYANOCOBALAMIN (CYANOCOBALAMIN) [Concomitant]
  14. THYROID TAB [Concomitant]
  15. GLIBOMET (METFORMIN HYDROCHLORIDE, GLIBENCLAMIDE) [Concomitant]
  16. LEVOBUNOLOL (LEVOBUNOLOL) [Concomitant]
  17. CICLOPIROX (CICLOPIROX) [Concomitant]
  18. SPIRONOLACTONE [Concomitant]

REACTIONS (22)
  - ATRIOVENTRICULAR BLOCK COMPLETE [None]
  - BLOOD CALCIUM INCREASED [None]
  - BLOOD PHOSPHORUS INCREASED [None]
  - CARDIAC ARREST [None]
  - CARDIOMEGALY [None]
  - COMA [None]
  - CORONARY ARTERY DISEASE [None]
  - COUGH [None]
  - DIABETES MELLITUS INADEQUATE CONTROL [None]
  - HYPERHIDROSIS [None]
  - HYPERKALAEMIA [None]
  - HYPOXIA [None]
  - LACTIC ACIDOSIS [None]
  - LIVER FUNCTION TEST ABNORMAL [None]
  - MYCETOMA MYCOTIC [None]
  - PULMONARY ARTERIAL WEDGE PRESSURE INCREASED [None]
  - PULMONARY CONGESTION [None]
  - RENAL FAILURE [None]
  - RESPIRATORY FAILURE [None]
  - RESPIRATORY RATE INCREASED [None]
  - SEPSIS [None]
  - TENDON INJURY [None]
